FAERS Safety Report 6407925-6 (Version None)
Quarter: 2009Q4

REPORT INFORMATION
  Report Type: 
  Country: None (occurrence: None)
  Receive Date: 20091016
  Receipt Date: 20091005
  Transmission Date: 20100525
  Serious: Yes (Other)
  Sender: FDA-Public Use
  Company Number: 2008FR0189

PATIENT
  Age: 8 Year
  Sex: Male
  Weight: 27 kg

DRUGS (1)
  1. ORFADIN [Suspect]
     Indication: TYROSINAEMIA
     Dosage: 0.63 MG/KG, ORAL
     Route: 048
     Dates: start: 20010710

REACTIONS (2)
  - HEPATIC NEOPLASM MALIGNANT [None]
  - THERAPEUTIC AGENT TOXICITY [None]
